FAERS Safety Report 13427264 (Version 2)
Quarter: 2017Q2

REPORT INFORMATION
  Report Type: Spontaneous
  Country: JP (occurrence: JP)
  Receive Date: 20170411
  Receipt Date: 20170427
  Transmission Date: 20170830
  Serious: Yes (Hospitalization)
  Sender: FDA-Public Use
  Company Number: JP-ASTELLAS-2017JP005937

PATIENT
  Sex: Female

DRUGS (1)
  1. PROGRAF [Suspect]
     Active Substance: TACROLIMUS\TACROLIMUS ANHYDROUS
     Indication: MIXED CONNECTIVE TISSUE DISEASE
     Dosage: 2 MG, ONCE DAILY, AT NIGHT
     Route: 048

REACTIONS (3)
  - Off label use [Unknown]
  - Threatened labour [Unknown]
  - Maternal exposure during pregnancy [Unknown]
